FAERS Safety Report 6792712-X (Version None)
Quarter: 2010Q2

REPORT INFORMATION
  Report Type: 
  Country: None (occurrence: None)
  Receive Date: 20100624
  Receipt Date: 20081027
  Transmission Date: 20101027
  Serious: No
  Sender: FDA-Public Use
  Company Number: US-PFIZER INC-2008073020

PATIENT
  Sex: Female
  Weight: 54.5 kg

DRUGS (6)
  1. XALATAN [Suspect]
     Indication: INTRAOCULAR PRESSURE INCREASED
     Dosage: 1 GTT, 1X/DAY
     Route: 047
     Dates: start: 20080715
  2. XALATAN [Suspect]
     Indication: OPEN ANGLE GLAUCOMA
  3. NORVASC [Concomitant]
     Indication: HYPERTENSION
     Dosage: 5 MG, UNK
  4. SYNTHROID [Concomitant]
  5. POTASSIUM [Concomitant]
  6. DIAZIDE [Concomitant]

REACTIONS (9)
  - DRY EYE [None]
  - DRY SKIN [None]
  - ERYTHEMA OF EYELID [None]
  - EYE ALLERGY [None]
  - EYE IRRITATION [None]
  - EYE PRURITUS [None]
  - EYE SWELLING [None]
  - OCULAR HYPERAEMIA [None]
  - SKIN WRINKLING [None]
